FAERS Safety Report 9856304 (Version 2)
Quarter: 2014Q2

REPORT INFORMATION
  Report Type: Spontaneous
  Country: US (occurrence: US)
  Receive Date: 20140130
  Receipt Date: 20140422
  Transmission Date: 20141212
  Serious: Yes (Hospitalization, Other)
  Sender: FDA-Public Use
  Company Number: US-BAYER-2014-015433

PATIENT
  Age: 22 Year
  Sex: Female
  Weight: 86.17 kg

DRUGS (13)
  1. MIRENA [Suspect]
     Indication: CONTRACEPTION
     Dosage: 20 MCG/24HR, CONT
     Route: 015
     Dates: start: 20070614, end: 20090403
  2. AMBIEN [Concomitant]
  3. PRENATAL VITAMINS [Concomitant]
  4. LUNESTA [Concomitant]
     Indication: SLEEP DISORDER THERAPY
  5. MEPERGAN [Concomitant]
  6. IRON [Concomitant]
     Dosage: TAKE DAILY
  7. LORTAB [Concomitant]
     Dosage: 5/500
  8. TORADOL [Concomitant]
     Dosage: 60 MG, UNK
     Route: 030
  9. MACROBID [Concomitant]
  10. CYTOTEC [Concomitant]
  11. TYLENOL [PARACETAMOL] [Concomitant]
  12. LEVSIN [Concomitant]
  13. LISINOPRIL [Concomitant]
     Indication: HYPERTENSION

REACTIONS (12)
  - Uterine perforation [None]
  - Injury [None]
  - Pain [None]
  - Emotional distress [None]
  - Pregnancy with contraceptive device [Recovered/Resolved]
  - Drug ineffective [None]
  - Abortion spontaneous [None]
  - Depression [None]
  - Anxiety [None]
  - Abnormal dreams [None]
  - Insomnia [None]
  - Off label use [None]
